FAERS Safety Report 22586325 (Version 2)
Quarter: 2023Q2

REPORT INFORMATION
  Report Type: Spontaneous
  Country: BR (occurrence: BR)
  Receive Date: 20230611
  Receipt Date: 20230621
  Transmission Date: 20230721
  Serious: Yes (Death, Hospitalization)
  Sender: FDA-Public Use
  Company Number: BR-Accord-362164

PATIENT
  Age: 77 Year
  Sex: Female
  Weight: 49 kg

DRUGS (11)
  1. PACLITAXEL [Suspect]
     Active Substance: PACLITAXEL
     Indication: Endometrial adenocarcinoma
     Route: 042
     Dates: start: 20221109, end: 20221130
  2. CARBOPLATIN [Concomitant]
     Active Substance: CARBOPLATIN
     Indication: Chemotherapy
     Route: 042
     Dates: start: 20221109, end: 202211
  3. DEXAMETHASONE [Concomitant]
     Active Substance: DEXAMETHASONE
     Indication: Chemotherapy
  4. DIPHENHYDRAMINE [Concomitant]
     Active Substance: DIPHENHYDRAMINE
     Indication: Chemotherapy side effect prophylaxis
  5. ONDANSETRON [Concomitant]
     Active Substance: ONDANSETRON
     Indication: Chemotherapy side effect prophylaxis
  6. HYDROCORTISONE [Concomitant]
     Active Substance: HYDROCORTISONE
     Indication: Chemotherapy side effect prophylaxis
  7. OMEPRAZOLE [Concomitant]
     Active Substance: OMEPRAZOLE
     Route: 048
  8. MORPHINE [Concomitant]
     Active Substance: MORPHINE
  9. METOCLOPRAMIDE [Concomitant]
     Active Substance: METOCLOPRAMIDE
  10. DIPYRONE [Concomitant]
     Active Substance: DIPYRONE
     Dosage: 56 DROPS DAILY
     Route: 048
  11. GABAPENTIN [Concomitant]
     Active Substance: GABAPENTIN

REACTIONS (7)
  - Neutropenia [Fatal]
  - Pyrexia [Fatal]
  - Vomiting [Fatal]
  - Asthenia [Fatal]
  - Off label use [Unknown]
  - Constipation [Fatal]
  - Abdominal distension [Fatal]

NARRATIVE: CASE EVENT DATE: 20221204
